FAERS Safety Report 25307908 (Version 2)
Quarter: 2025Q3

REPORT INFORMATION
  Report Type: Spontaneous
  Country: US (occurrence: US)
  Receive Date: 20250513
  Receipt Date: 20250702
  Transmission Date: 20251020
  Serious: Yes (Life-Threatening, Hospitalization, Other)
  Sender: VIIV
  Company Number: US-VIIV HEALTHCARE- US2025055815

PATIENT
  Age: 54 Year
  Sex: Male
  Weight: 61.224 kg

DRUGS (5)
  1. CABENUVA [Suspect]
     Active Substance: CABOTEGRAVIR\RILPIVIRINE
     Indication: HIV infection
  2. CABENUVA [Suspect]
     Active Substance: CABOTEGRAVIR\RILPIVIRINE
  3. CABENUVA [Suspect]
     Active Substance: CABOTEGRAVIR\RILPIVIRINE
  4. GENVOYA [Concomitant]
     Active Substance: COBICISTAT\ELVITEGRAVIR\EMTRICITABINE\TENOFOVIR ALAFENAMIDE FUMARATE
     Indication: Product used for unknown indication
  5. FUROSEMIDE [Concomitant]
     Active Substance: FUROSEMIDE
     Indication: Product used for unknown indication

REACTIONS (20)
  - Hepatitis B [Not Recovered/Not Resolved]
  - Hepatic cirrhosis [Not Recovered/Not Resolved]
  - Drug-induced liver injury [Not Recovered/Not Resolved]
  - Cholestasis [Not Recovered/Not Resolved]
  - Portal hypertension [Unknown]
  - Ascites [Unknown]
  - Haematochezia [Unknown]
  - Oesophageal candidiasis [Unknown]
  - Gastric ulcer [Unknown]
  - COVID-19 [Unknown]
  - Gastrointestinal disorder [Unknown]
  - Anorectal disorder [Unknown]
  - Weight decreased [Unknown]
  - Haemorrhoids [Recovered/Resolved]
  - Large intestine benign neoplasm [Unknown]
  - Anogenital warts [Unknown]
  - Ear discomfort [Unknown]
  - Insomnia [Unknown]
  - Varices oesophageal [Unknown]
  - Dyspepsia [Unknown]

NARRATIVE: CASE EVENT DATE: 20250127
